FAERS Safety Report 20067966 (Version 1)
Quarter: 2021Q4

REPORT INFORMATION
  Report Type: Spontaneous
  Country: CN (occurrence: CN)
  Receive Date: 20211115
  Receipt Date: 20211115
  Transmission Date: 20220303
  Serious: Yes (Other)
  Sender: FDA-Public Use
  Company Number: CN-BAXTER-2021BAX035509

PATIENT
  Age: 76 Year
  Sex: Female
  Weight: 49 kg

DRUGS (2)
  1. CYCLOPHOSPHAMIDE [Suspect]
     Active Substance: CYCLOPHOSPHAMIDE
     Indication: Plasma cell myeloma
     Dosage: CYCLOPHOSPHAMIDE FOR INJECTION 0.2 G QD + 0.9% SODIUM CHLORIDE INJECTION 250 ML IVGTT
     Route: 041
     Dates: start: 20210718, end: 20210721
  2. SODIUM CHLORIDE [Suspect]
     Active Substance: SODIUM CHLORIDE
     Indication: Medication dilution
     Dosage: CYCLOPHOSPHAMIDE FOR INJECTION 0.2 G QD + 0.9% SODIUM CHLORIDE INJECTION 250 ML IVGTT
     Route: 041
     Dates: start: 20210718, end: 20210721

REACTIONS (1)
  - Myelosuppression [Unknown]

NARRATIVE: CASE EVENT DATE: 20210721
